FAERS Safety Report 12633033 (Version 1)
Quarter: 2016Q3

REPORT INFORMATION
  Report Type: Spontaneous
  Country: US (occurrence: None)
  Receive Date: 20160808
  Receipt Date: 20160808
  Transmission Date: 20161109
  Serious: No
  Sender: FDA-Public Use
  Company Number: None

PATIENT
  Age: 70 Year
  Sex: Male
  Weight: 95.26 kg

DRUGS (14)
  1. ALLEGRA [Concomitant]
     Active Substance: FEXOFENADINE HYDROCHLORIDE
  2. FERGON [Concomitant]
     Active Substance: FERROUS GLUCONATE
  3. MELOXICAN [Suspect]
     Active Substance: MELOXICAM
     Indication: PAIN
     Route: 048
     Dates: start: 20160715, end: 20160719
  4. TRIAMCINOLONE [Concomitant]
     Active Substance: TRIAMCINOLONE
  5. ASPIRIN. [Concomitant]
     Active Substance: ASPIRIN
  6. PIROXICAM. [Suspect]
     Active Substance: PIROXICAM
     Indication: PROSTATE INFECTION
     Route: 048
     Dates: start: 20151006, end: 20151231
  7. HYDROCHLOROTHIAZIDE. [Concomitant]
     Active Substance: HYDROCHLOROTHIAZIDE
  8. POTASSIUM CL [Concomitant]
     Active Substance: POTASSIUM CHLORIDE
  9. BENICAR [Concomitant]
     Active Substance: OLMESARTAN MEDOXOMIL
  10. CENTRUM SILVER [Concomitant]
     Active Substance: MINERALS\VITAMINS
  11. SLO-NIACIN [Concomitant]
     Active Substance: DIETARY SUPPLEMENT
  12. MELOXICAN [Suspect]
     Active Substance: MELOXICAM
     Indication: PROSTATE CANCER
     Route: 048
     Dates: start: 20160715, end: 20160719
  13. PIROXICAM. [Suspect]
     Active Substance: PIROXICAM
     Indication: PAIN
     Route: 048
     Dates: start: 20151006, end: 20151231
  14. HYDROCODONE BITARTRATE AND ACETAMINOPHEN [Concomitant]
     Active Substance: ACETAMINOPHEN\HYDROCODONE BITARTRATE

REACTIONS (1)
  - Cystitis interstitial [None]

NARRATIVE: CASE EVENT DATE: 20160719
